FAERS Safety Report 21407114 (Version 4)
Quarter: 2022Q4

REPORT INFORMATION
  Report Type: Spontaneous
  Country: US (occurrence: US)
  Receive Date: 20221004
  Receipt Date: 20221109
  Transmission Date: 20230112
  Serious: Yes (Other)
  Sender: FDA-Public Use
  Company Number: US-PFIZER INC-202201185066

PATIENT
  Sex: Female

DRUGS (1)
  1. PREMARIN [Suspect]
     Active Substance: ESTROGENS, CONJUGATED
     Dosage: UNK (4 TIMES OVER THE PAST TWO WEEKS)
     Route: 067
     Dates: start: 202209

REACTIONS (8)
  - Vulvovaginal burning sensation [Not Recovered/Not Resolved]
  - Vulvovaginal pruritus [Unknown]
  - Vaginal discharge [Unknown]
  - Vulvovaginal erythema [Unknown]
  - Vulvovaginal dryness [Unknown]
  - Secretion discharge [Unknown]
  - Vulvovaginal mycotic infection [Unknown]
  - Vulvovaginal pain [Unknown]

NARRATIVE: CASE EVENT DATE: 20220901
